FAERS Safety Report 19741867 (Version 1)
Quarter: 2021Q3

REPORT INFORMATION
  Report Type: Report from Study
  Country: US (occurrence: US)
  Receive Date: 20210824
  Receipt Date: 20210824
  Transmission Date: 20211014
  Serious: Yes (Other)
  Sender: FDA-Public Use
  Company Number: US-MYLANLABS-2021M1054087

PATIENT
  Sex: Female
  Weight: 104 kg

DRUGS (1)
  1. GLATIRAMER ACETATE INJECTION [Suspect]
     Active Substance: GLATIRAMER ACETATE
     Indication: RELAPSING-REMITTING MULTIPLE SCLEROSIS
     Dosage: 40 MILLIGRAM, 3XW (3 WEEKLY)
     Route: 058

REACTIONS (6)
  - Gait disturbance [Unknown]
  - Multiple sclerosis relapse [Unknown]
  - Speech disorder [Unknown]
  - Limb injury [Unknown]
  - Visual impairment [Unknown]
  - Product dose omission issue [Unknown]
